FAERS Safety Report 7585109-6 (Version None)
Quarter: 2011Q3

REPORT INFORMATION
  Report Type: 
  Country: None (occurrence: None)
  Receive Date: 20110701
  Receipt Date: 20110622
  Transmission Date: 20111222
  Serious: Yes (Other)
  Sender: FDA-Public Use
  Company Number: US-BIOGENIDEC-2010BI039704

PATIENT
  Age: 63 Year
  Sex: Male
  Weight: 80 kg

DRUGS (15)
  1. AMANTADINE HCL [Concomitant]
     Indication: FATIGUE
     Route: 048
     Dates: start: 20080414
  2. DETROL LA [Concomitant]
     Indication: URINARY INCONTINENCE
     Route: 048
     Dates: start: 20091007
  3. HYDROCODONE [Concomitant]
     Indication: HEADACHE
     Route: 048
     Dates: start: 20091216
  4. CELEXA [Concomitant]
     Indication: DEPRESSION
     Route: 048
     Dates: start: 20100812
  5. NEURONTIN [Concomitant]
     Indication: NEUROPATHY PERIPHERAL
     Route: 048
     Dates: start: 20080414
  6. OMEPRAZOLE [Concomitant]
     Indication: GASTROOESOPHAGEAL REFLUX DISEASE
     Route: 048
     Dates: start: 20101025
  7. VIMPAT [Concomitant]
     Indication: NEUROPATHY PERIPHERAL
     Route: 048
     Dates: start: 20101025
  8. 4 AP [Concomitant]
     Indication: FATIGUE
     Route: 048
     Dates: start: 20090416
  9. COZAAR [Concomitant]
     Indication: HYPERTENSION
     Route: 048
     Dates: start: 20100816
  10. FLOMAX [Concomitant]
     Indication: BENIGN PROSTATIC HYPERPLASIA
     Route: 048
     Dates: start: 20101025
  11. ARTANE [Concomitant]
     Indication: PARKINSON'S DISEASE
     Route: 048
     Dates: start: 20091216
  12. BACLOFEN [Concomitant]
     Indication: MUSCLE SPASMS
     Route: 048
     Dates: start: 20070607
  13. TYSABRI [Suspect]
     Indication: MULTIPLE SCLEROSIS
     Route: 042
     Dates: start: 20080430
  14. ARICEPT [Concomitant]
     Indication: MEMORY IMPAIRMENT
     Route: 048
     Dates: start: 20081229
  15. BENICAR [Concomitant]
     Indication: HYPERTENSION
     Route: 048
     Dates: start: 20070518

REACTIONS (1)
  - SQUAMOUS CELL CARCINOMA OF SKIN [None]
